FAERS Safety Report 9991428 (Version 1)
Quarter: 2014Q1

REPORT INFORMATION
  Report Type: Spontaneous
  Country: US (occurrence: US)
  Receive Date: 20140310
  Receipt Date: 20140310
  Transmission Date: 20141002
  Serious: No
  Sender: FDA-Public Use
  Company Number: US-ABBVIE-13P-163-1135846-00

PATIENT
  Age: 63 Year
  Sex: Female
  Weight: 55.39 kg

DRUGS (19)
  1. HUMIRA [Suspect]
     Indication: CROHN^S DISEASE
     Route: 058
     Dates: start: 2010
  2. NORTRIPTYLINE [Concomitant]
     Indication: MIGRAINE
  3. FLUTICASONE [Concomitant]
     Indication: LUNG DISORDER
  4. PROVIGIL [Concomitant]
     Indication: NUTRITIONAL SUPPLEMENTATION
  5. CYMBALTA [Concomitant]
     Indication: DEPRESSION
  6. NAMENDA [Concomitant]
     Indication: MIGRAINE
  7. FOLIC ACID [Concomitant]
     Indication: VITAMIN SUPPLEMENTATION
  8. ASPIRIN [Concomitant]
     Indication: ANTICOAGULANT THERAPY
  9. ALLERGY RELIEF MEDICATION [Concomitant]
     Indication: HYPERSENSITIVITY
  10. MIGRELIEF [Concomitant]
     Indication: MIGRAINE
  11. AMLODIPINE [Concomitant]
     Indication: HYPERTENSION
  12. OMEPRAZOLE [Concomitant]
     Indication: GASTROOESOPHAGEAL REFLUX DISEASE
  13. MICARDIS [Concomitant]
     Indication: HYPERTENSION
  14. PRAVASTATIN [Concomitant]
     Indication: BLOOD CHOLESTEROL INCREASED
  15. TOPIRAMATE [Concomitant]
     Indication: PRODUCT USED FOR UNKNOWN INDICATION
  16. VITAMIN B COMPLEX [Concomitant]
     Indication: VITAMIN SUPPLEMENTATION
  17. CALCIUM CITRATE [Concomitant]
     Indication: MINERAL SUPPLEMENTATION
  18. HAIR AND NAIL VITAMIN [Concomitant]
     Indication: VITAMIN SUPPLEMENTATION
  19. COLLAGEN [Concomitant]
     Indication: VITAMIN SUPPLEMENTATION

REACTIONS (11)
  - Facial bones fracture [Recovering/Resolving]
  - Fall [Unknown]
  - Laceration [Recovering/Resolving]
  - Head injury [Unknown]
  - Epistaxis [Recovered/Resolved]
  - Eye haemorrhage [Recovered/Resolved]
  - Neck pain [Not Recovered/Not Resolved]
  - Back pain [Not Recovered/Not Resolved]
  - Musculoskeletal pain [Not Recovered/Not Resolved]
  - Pain in extremity [Not Recovered/Not Resolved]
  - Amnesia [Not Recovered/Not Resolved]
